FAERS Safety Report 25328923 (Version 1)
Quarter: 2025Q2

REPORT INFORMATION
  Report Type: Spontaneous
  Country: US (occurrence: US)
  Receive Date: 20250519
  Receipt Date: 20250519
  Transmission Date: 20250717
  Serious: Yes (Hospitalization, Other)
  Sender: NOVO NORDISK
  Company Number: US-NOVOPROD-1428006

PATIENT
  Age: 54 Year
  Sex: Female

DRUGS (5)
  1. OZEMPIC [Suspect]
     Active Substance: SEMAGLUTIDE
     Dates: end: 202409
  2. OZEMPIC [Suspect]
     Active Substance: SEMAGLUTIDE
     Indication: Type 2 diabetes mellitus
     Dates: start: 202401
  3. OZEMPIC [Suspect]
     Active Substance: SEMAGLUTIDE
     Dates: start: 2024, end: 202412
  4. OZEMPIC [Suspect]
     Active Substance: SEMAGLUTIDE
  5. LANTUS [Concomitant]
     Active Substance: INSULIN GLARGINE
     Indication: Product used for unknown indication

REACTIONS (4)
  - Colon cancer [Not Recovered/Not Resolved]
  - Fall [Unknown]
  - Walking aid user [Unknown]
  - Head injury [Unknown]

NARRATIVE: CASE EVENT DATE: 20250101
